FAERS Safety Report 4654692-2 (Version None)
Quarter: 2005Q2

REPORT INFORMATION
  Report Type: 
  Country: None (occurrence: None)
  Receive Date: 20050505
  Receipt Date: 20050505
  Transmission Date: 20051028
  Serious: Yes (Other)
  Sender: FDA-Public Use
  Company Number: None

PATIENT
  Sex: Male
  Weight: 135.5 kg

DRUGS (4)
  1. DAUNORUBICIN HCL [Suspect]
     Indication: ACUTE MYELOID LEUKAEMIA
     Dosage: 45 MG/M2/IV DAYS 1-3
     Route: 042
     Dates: start: 20041210
  2. ZOSUQUIDAR [Suspect]
     Dosage: 550 MG/DAY IV DAYS 1-3
     Route: 042
  3. CYTARABINE [Suspect]
     Dosage: 100 MG/M2/DAY IV
     Route: 042
  4. G-CSF [Suspect]
     Dosage: DAY 12 THRU ANC}/= 500 CELLS FOR 3 CONSECUTIVE DAYS

REACTIONS (4)
  - BLOOD CULTURE POSITIVE [None]
  - CATHETER RELATED INFECTION [None]
  - LIVER FUNCTION TEST ABNORMAL [None]
  - STAPHYLOCOCCAL INFECTION [None]
